FAERS Safety Report 5345629-1 (Version None)
Quarter: 2007Q2

REPORT INFORMATION
  Report Type: 
  Country: None (occurrence: None)
  Receive Date: 20070605
  Receipt Date: 20070214
  Transmission Date: 20071010
  Serious: No
  Sender: FDA-Public Use
  Company Number: US-ASTRAZENECA-2007UW02964

PATIENT
  Age: 68 Year
  Sex: Female
  Weight: 99.8 kg

DRUGS (5)
  1. PRILOSEC [Suspect]
     Indication: GASTROOESOPHAGEAL REFLUX DISEASE
     Route: 048
  2. TIZAC [Concomitant]
  3. SINGULAIR [Concomitant]
  4. ESTRACE [Concomitant]
  5. SYNTHROID [Concomitant]

REACTIONS (1)
  - SALIVARY GLAND DISORDER [None]
